FAERS Safety Report 8977901 (Version 2)
Quarter: 2013Q1

REPORT INFORMATION
  Report Type: Report from Study
  Country: JP (occurrence: JP)
  Receive Date: 20121219
  Receipt Date: 20130313
  Transmission Date: 20140127
  Serious: Yes (Other)
  Sender: FDA-Public Use
  Company Number: JP-VERTEX PHARMACEUTICAL INC.-2012-023761

PATIENT
  Age: 64 Year
  Sex: Male

DRUGS (7)
  1. VX-950 (TELAPREVIR) [Suspect]
     Indication: CHRONIC HEPATITIS C
     Dosage: 1500 MG, QD
     Route: 048
     Dates: start: 20120903, end: 20121126
  2. PEGINTERFERON ALFA-2B [Concomitant]
     Dosage: 1.5 ?G/KG, QW
     Route: 058
     Dates: start: 20120903
  3. RIBAVIRIN [Concomitant]
     Dosage: 1000 MG, QD
     Route: 048
     Dates: end: 20120917
  4. RIBAVIRIN [Concomitant]
     Dosage: 600 MG, QD
     Route: 048
     Dates: start: 20120918
  5. GASTER D [Concomitant]
     Dosage: 20 MG, QD
     Route: 048
  6. CLARITIN REDITABS [Concomitant]
     Dosage: 10 MG, QD
     Route: 048
  7. CLARITIN REDITABS [Concomitant]
     Dosage: 200 MG, QD
     Route: 048

REACTIONS (1)
  - Renal impairment [Recovered/Resolved]
